FAERS Safety Report 12275723 (Version 3)
Quarter: 2016Q2

REPORT INFORMATION
  Report Type: Spontaneous
  Country: JP (occurrence: JP)
  Receive Date: 20160418
  Receipt Date: 20160615
  Transmission Date: 20160815
  Serious: Yes (Hospitalization)
  Sender: FDA-Public Use
  Company Number: JP-ROCHE-1742256

PATIENT
  Sex: Female

DRUGS (3)
  1. BONVIVA [Suspect]
     Active Substance: IBANDRONATE SODIUM
     Indication: PRODUCT USED FOR UNKNOWN INDICATION
     Dosage: DOSAGE IS UNCERTAIN.
     Route: 042
  2. EDIROL [Suspect]
     Active Substance: ELDECALCITOL
     Indication: PRODUCT USED FOR UNKNOWN INDICATION
     Route: 048
  3. ELCITONIN [Concomitant]
     Active Substance: ELCATONIN
     Dosage: DOSAGE IS UNCERTAIN.
     Route: 065

REACTIONS (11)
  - Glossodynia [Unknown]
  - Malaise [Unknown]
  - Arthralgia [Unknown]
  - Foreign body [Unknown]
  - Sputum retention [Unknown]
  - Diarrhoea [Unknown]
  - Pain [Unknown]
  - Salivary hypersecretion [Unknown]
  - Saliva discolouration [Unknown]
  - Back pain [Unknown]
  - Epistaxis [Unknown]
